FAERS Safety Report 10082598 (Version 1)
Quarter: 2014Q2

REPORT INFORMATION
  Report Type: Spontaneous
  Country: FR (occurrence: FR)
  Receive Date: 20140416
  Receipt Date: 20140416
  Transmission Date: 20141212
  Serious: Yes (Hospitalization)
  Sender: FDA-Public Use
  Company Number: PHHY2014FR043089

PATIENT
  Age: 76 Year
  Sex: Female

DRUGS (11)
  1. SOTALOL SANDOZ [Suspect]
     Indication: PRODUCT USED FOR UNKNOWN INDICATION
     Dosage: 1 DF, BID
     Route: 048
     Dates: start: 20081019
  2. ABILIFY [Concomitant]
  3. LOXAPAC [Concomitant]
  4. ATARAX                                  /CAN/ [Concomitant]
  5. THERALENE [Concomitant]
  6. MONO TILDIEM [Concomitant]
  7. KARDEGIC [Concomitant]
  8. DEBRIDAT [Concomitant]
  9. DUPHALAC                                /NET/ [Concomitant]
  10. DIFFU K [Concomitant]
  11. TARDYFERON [Concomitant]

REACTIONS (2)
  - Bradycardia [Recovered/Resolved]
  - Drug administration error [Recovered/Resolved]
